FAERS Safety Report 12881734 (Version 1)
Quarter: 2016Q4

REPORT INFORMATION
  Report Type: Spontaneous
  Country: US (occurrence: US)
  Receive Date: 20161025
  Receipt Date: 20161025
  Transmission Date: 20170207
  Serious: No
  Sender: FDA-Public Use
  Company Number: US-JNJFOC-20161011444

PATIENT
  Sex: Female

DRUGS (1)
  1. TOPAMAX [Suspect]
     Active Substance: TOPIRAMATE
     Indication: MIGRAINE PROPHYLAXIS
     Dosage: AT PM
     Route: 048

REACTIONS (4)
  - Hypersomnia [Unknown]
  - Abnormal behaviour [Unknown]
  - Asthenia [Unknown]
  - Weight decreased [Unknown]
